FAERS Safety Report 6774933-5 (Version None)
Quarter: 2010Q2

REPORT INFORMATION
  Report Type: 
  Country: None (occurrence: None)
  Receive Date: 20100617
  Receipt Date: 20100324
  Transmission Date: 20101027
  Serious: Yes (Hospitalization, Other)
  Sender: FDA-Public Use
  Company Number: US-BAYER-200937460NA

PATIENT
  Age: 17 Year
  Sex: Female
  Weight: 87 kg

DRUGS (3)
  1. YASMIN [Suspect]
     Indication: MENSTRUATION IRREGULAR
     Route: 048
     Dates: start: 20060801, end: 20080701
  2. YASMIN [Suspect]
     Route: 048
     Dates: start: 20081101, end: 20090601
  3. OCELLA [Suspect]
     Indication: MENSTRUATION IRREGULAR
     Route: 048
     Dates: start: 20080701, end: 20081101

REACTIONS (1)
  - CHOLECYSTITIS [None]
